FAERS Safety Report 5490718-4 (Version None)
Quarter: 2007Q4

REPORT INFORMATION
  Report Type: 
  Country: None (occurrence: None)
  Receive Date: 20071019
  Receipt Date: 20071018
  Transmission Date: 20080405
  Serious: Yes (Other)
  Sender: FDA-Public Use
  Company Number: A0688492A

PATIENT
  Age: 65 Year
  Sex: Female

DRUGS (8)
  1. LAMICTAL [Suspect]
     Indication: DEPRESSION
     Dosage: 25MG PER DAY
     Route: 048
     Dates: start: 20071009
  2. GLYCOPYRROLATE [Concomitant]
  3. PAREGORIC [Concomitant]
  4. LIBRAX [Concomitant]
  5. RESTORIL [Concomitant]
  6. IMODIUM [Concomitant]
  7. ALPHAGAN P [Concomitant]
  8. PREDNISOLONE [Concomitant]

REACTIONS (3)
  - HEPATIC ENZYME INCREASED [None]
  - NAUSEA [None]
  - PANIC ATTACK [None]
